FAERS Safety Report 5399026-3 (Version None)
Quarter: 2007Q3

REPORT INFORMATION
  Report Type: 
  Country: None (occurrence: None)
  Receive Date: 20070723
  Receipt Date: 20070723
  Transmission Date: 20080115
  Serious: Yes (Hospitalization, Other)
  Sender: FDA-Public Use
  Company Number: None

PATIENT
  Age: 28 Year
  Sex: Female

DRUGS (3)
  1. ORTHO EVRA [Suspect]
  2. XANAXR [Concomitant]
  3. AMBIEN [Concomitant]

REACTIONS (1)
  - DEEP VEIN THROMBOSIS [None]
